FAERS Safety Report 17756655 (Version 1)
Quarter: 2020Q2

REPORT INFORMATION
  Report Type: Report from Study
  Country: GB (occurrence: GB)
  Receive Date: 20200507
  Receipt Date: 20200507
  Transmission Date: 20200714
  Serious: Yes (Other)
  Sender: FDA-Public Use
  Company Number: NVSC2020GB122802

PATIENT
  Sex: Male

DRUGS (4)
  1. HYRIMOZ [Suspect]
     Active Substance: ADALIMUMAB-ADAZ
     Indication: CROHN^S DISEASE
     Dosage: 40 MG ASD (40 MG/0.8 ML)
     Route: 058
     Dates: start: 20200420
  2. HYRIMOZ [Suspect]
     Active Substance: ADALIMUMAB-ADAZ
     Dosage: 80 MG, Q2W (EVERY 14 DAYS FOR 14 DAYS)
     Route: 058
     Dates: start: 20200420
  3. HYRIMOZ [Suspect]
     Active Substance: ADALIMUMAB-ADAZ
     Dosage: 40 MG, Q2W (EVERY 14 DAYS FOR 14 DAYS)
     Route: 058
     Dates: start: 20200420
  4. HYRIMOZ [Suspect]
     Active Substance: ADALIMUMAB-ADAZ
     Dosage: 160 MG, Q2W (EVERY 14 DAYS FOR 14 DAYS)
     Route: 058
     Dates: start: 20200420

REACTIONS (1)
  - Coronavirus infection [Unknown]
